FAERS Safety Report 4277066-5 (Version None)
Quarter: 2004Q1

REPORT INFORMATION
  Report Type: 
  Country: None (occurrence: None)
  Receive Date: 20040120
  Receipt Date: 20040108
  Transmission Date: 20041129
  Serious: Yes (Life-Threatening, Hospitalization)
  Sender: FDA-Public Use
  Company Number: 2003-BP-10547NB

PATIENT
  Age: 72 Year
  Sex: Male

DRUGS (4)
  1. MEXITIL [Suspect]
     Indication: ARRHYTHMIA
     Dosage: 100 MG (100 MG) PO
     Route: 048
     Dates: start: 20030212, end: 20030401
  2. HARNAL (TAMSULOSIN HYDROCHLORIDE) (KA) [Concomitant]
  3. EVIPROSTAT (EVIPROSTAT) (KA) [Concomitant]
  4. SELBEX (TEPRENONE) (KA) [Concomitant]

REACTIONS (1)
  - STEVENS-JOHNSON SYNDROME [None]
